FAERS Safety Report 4972931-5 (Version None)
Quarter: 2006Q2

REPORT INFORMATION
  Report Type: 
  Country: None (occurrence: None)
  Receive Date: 20060410
  Receipt Date: 20060325
  Transmission Date: 20061013
  Serious: Yes (Other)
  Sender: FDA-Public Use
  Company Number: US200603006303

PATIENT
  Sex: Male

DRUGS (1)
  1. XIGRIS [Suspect]
     Dosage: INTRAVENOUS
     Route: 042
     Dates: end: 20060325

REACTIONS (1)
  - PLATELET COUNT DECREASED [None]
